FAERS Safety Report 6790430-5 (Version None)
Quarter: 2010Q2

REPORT INFORMATION
  Report Type: 
  Country: None (occurrence: None)
  Receive Date: 20100624
  Receipt Date: 20090820
  Transmission Date: 20101027
  Serious: Yes (Hospitalization)
  Sender: FDA-Public Use
  Company Number: FR-ROCHE-589462

PATIENT
  Sex: Female

DRUGS (4)
  1. CAPECITABINE [Suspect]
     Indication: METASTATIC GASTRIC CANCER
     Route: 065
  2. IRINOTECAN [Suspect]
     Indication: METASTATIC GASTRIC CANCER
     Dosage: DOSE REPORTED AS 180MG/M2 IN 250ML NACL 0.9% IN 90 MIN INFUSION.
     Route: 065
  3. FOLINIC ACID [Suspect]
     Indication: METASTATIC GASTRIC CANCER
     Dosage: DOSE REPORTED AS 400MG/M2 IN 250ML GLUCOSE 5% INFUSION IN 2 HOURS.
     Route: 065
  4. FLUOROURACIL [Suspect]
     Indication: METASTATIC GASTRIC CANCER
     Dosage: DOSE: 400MG/M2 10 MINUTES BOLUS FOLLOWED BY 2400MG/M2 IN GLUCOSE 5% CONTINUOUS INFUSION DURING 46HR.
     Route: 065

REACTIONS (1)
  - SEPTIC SHOCK [None]
